FAERS Safety Report 15355856 (Version 1)
Quarter: 2018Q3

REPORT INFORMATION
  Report Type: Spontaneous
  Country: US (occurrence: US)
  Receive Date: 20180830
  Receipt Date: 20180830
  Transmission Date: 20181010
  Serious: Yes (Other)
  Sender: FDA-Public Use
  Company Number: None

PATIENT
  Age: 65 Year
  Sex: Male
  Weight: 90 kg

DRUGS (4)
  1. ATORVASTATIN 80 MG [Concomitant]
     Active Substance: ATORVASTATIN
     Dates: start: 20180508
  2. XARELTO [Concomitant]
     Active Substance: RIVAROXABAN
     Dates: start: 20180523
  3. METOPROLOL TARTRATE 25 MG [Concomitant]
     Active Substance: METOPROLOL TARTRATE
     Dates: start: 20180501
  4. AMIODARONE [Suspect]
     Active Substance: AMIODARONE
     Indication: ATRIAL FIBRILLATION
     Route: 048
     Dates: start: 20180502, end: 20180823

REACTIONS (3)
  - Blindness [None]
  - Visual field defect [None]
  - Optic ischaemic neuropathy [None]

NARRATIVE: CASE EVENT DATE: 20180817
